FAERS Safety Report 10877657 (Version 1)
Quarter: 2015Q1

REPORT INFORMATION
  Report Type: Spontaneous
  Country: US (occurrence: None)
  Receive Date: 20150224
  Receipt Date: 20150224
  Transmission Date: 20150721
  Serious: No
  Sender: FDA-Public Use
  Company Number: 2015-00026

PATIENT
  Age: 53 Year
  Sex: Female

DRUGS (2)
  1. ZICAM COLD REMEDY [Suspect]
     Active Substance: ZINC ACETATE\ZINC GLUCONATE
     Indication: NASOPHARYNGITIS
     Dosage: 2 SPRAYS
     Route: 048
     Dates: start: 20141130
  2. DIOVAN [Concomitant]
     Active Substance: VALSARTAN

REACTIONS (5)
  - Oral discomfort [None]
  - Glossodynia [None]
  - Anosmia [None]
  - Dysgeusia [None]
  - Abdominal discomfort [None]

NARRATIVE: CASE EVENT DATE: 20141130
